FAERS Safety Report 11693119 (Version 1)
Quarter: 2015Q4

REPORT INFORMATION
  Report Type: Spontaneous
  Country: US (occurrence: US)
  Receive Date: 20151103
  Receipt Date: 20151103
  Transmission Date: 20160304
  Serious: Yes (Hospitalization)
  Sender: FDA-Public Use
  Company Number: US-LPDUSPRD-20150859

PATIENT
  Age: 18 Year
  Sex: Female

DRUGS (2)
  1. VALPROIC ACID. [Concomitant]
     Active Substance: VALPROIC ACID
     Dosage: DOSE NOT PROVIDED
     Route: 065
  2. LEVETIRACETAM INJECTION (0517-3605-01) [Suspect]
     Active Substance: LEVETIRACETAM
     Dosage: DOSE UNKNOWN
     Route: 065

REACTIONS (7)
  - Hepatitis [Unknown]
  - Rash morbilliform [Unknown]
  - Eosinophilia [Recovered/Resolved]
  - Pyrexia [Unknown]
  - Pharyngitis bacterial [Unknown]
  - Liver disorder [Unknown]
  - Face oedema [Unknown]
